FAERS Safety Report 6244958-7 (Version None)
Quarter: 2009Q2

REPORT INFORMATION
  Report Type: 
  Country: None (occurrence: None)
  Receive Date: 20090625
  Receipt Date: 20090622
  Transmission Date: 20091009
  Serious: Yes (Death)
  Sender: FDA-Public Use
  Company Number: PHEH2006US10361

PATIENT
  Sex: Female

DRUGS (2)
  1. EXJADE [Suspect]
     Indication: HAEMOSIDEROSIS
     Dosage: 1000 MG, QD
     Route: 048
     Dates: start: 20060301
  2. EXJADE [Suspect]
     Indication: IRON OVERLOAD

REACTIONS (3)
  - CARDIAC FAILURE CONGESTIVE [None]
  - IRON OVERLOAD [None]
  - RENAL FAILURE CHRONIC [None]
